FAERS Safety Report 11148331 (Version 1)
Quarter: 2015Q2

REPORT INFORMATION
  Report Type: Spontaneous
  Country: US (occurrence: None)
  Receive Date: 20150528
  Receipt Date: 20150528
  Transmission Date: 20150821
  Serious: Yes (Life-Threatening, Hospitalization)
  Sender: FDA-Public Use
  Company Number: None

PATIENT
  Age: 72 Year
  Sex: Male
  Weight: 59 kg

DRUGS (1)
  1. EMPAGLIFLOZIN 10MG BOEHRINGER INGELHEIM PHARMACEUTICA [Suspect]
     Active Substance: EMPAGLIFLOZIN
     Indication: DIABETES MELLITUS
     Dosage: 1 TABLET QD ORAL
     Route: 048
     Dates: start: 20150309, end: 20150330

REACTIONS (12)
  - Cough [None]
  - Sepsis [None]
  - Herpes simplex DNA test positive [None]
  - Staphylococcus test positive [None]
  - Malaise [None]
  - White blood cell count decreased [None]
  - Mucosal inflammation [None]
  - Neutropenia [None]
  - Pneumonia [None]
  - Respiratory tract congestion [None]
  - Pyrexia [None]
  - Streptococcus test positive [None]

NARRATIVE: CASE EVENT DATE: 20150330
